FAERS Safety Report 7377789-5 (Version None)
Quarter: 2011Q1

REPORT INFORMATION
  Report Type: 
  Country: None (occurrence: None)
  Receive Date: 20110328
  Receipt Date: 20110324
  Transmission Date: 20110831
  Serious: Yes (Life-Threatening)
  Sender: FDA-Public Use
  Company Number: SE-ASTRAZENECA-2011SE14958

PATIENT
  Age: 74 Year
  Sex: Female

DRUGS (3)
  1. TROMBYL [Concomitant]
  2. SELOKEN ZOC [Suspect]
     Route: 048
     Dates: end: 20110217
  3. SELOKEN ZOC [Suspect]
     Indication: ATRIAL FIBRILLATION
     Route: 048
     Dates: start: 20110127

REACTIONS (3)
  - PROTHROMBIN LEVEL DECREASED [None]
  - CARDIAC FAILURE [None]
  - LIVER DISORDER [None]
